FAERS Safety Report 9356317 (Version 1)
Quarter: 2013Q2

REPORT INFORMATION
  Report Type: Spontaneous
  Country: US (occurrence: US)
  Receive Date: 20130619
  Receipt Date: 20130619
  Transmission Date: 20140414
  Serious: No
  Sender: FDA-Public Use
  Company Number: US-PFIZER INC-2013183601

PATIENT
  Age: 43 Year
  Sex: Male

DRUGS (1)
  1. INLYTA [Suspect]
     Indication: NEOPLASM MALIGNANT
     Dosage: 5 MG, 2X/DAY
     Dates: start: 20130417, end: 20130520

REACTIONS (2)
  - Disease progression [Unknown]
  - Neoplasm malignant [Unknown]
